FAERS Safety Report 24832356 (Version 1)
Quarter: 2025Q1

REPORT INFORMATION
  Report Type: Spontaneous
  Country: US (occurrence: US)
  Receive Date: 20250110
  Receipt Date: 20250110
  Transmission Date: 20250409
  Serious: No
  Sender: BRISTOL-MYERS SQUIBB COMPANY
  Company Number: US-BRISTOL-MYERS SQUIBB COMPANY-2025-003861

PATIENT
  Age: 82 Year
  Sex: Male

DRUGS (1)
  1. INREBIC [Suspect]
     Active Substance: FEDRATINIB HYDROCHLORIDE
     Indication: Product used for unknown indication
     Dosage: DOSE: 100MG TAKE 3 CAPSULES DAILY FREQ: TAKE 3CAPSULES BY MOUTH DAILY
     Route: 048

REACTIONS (2)
  - Eye inflammation [Unknown]
  - Osteoarthritis [Unknown]
